FAERS Safety Report 15215817 (Version 2)
Quarter: 2019Q1

REPORT INFORMATION
  Report Type: Report from Study
  Country: DE (occurrence: DE)
  Receive Date: 20180730
  Receipt Date: 20190313
  Transmission Date: 20190417
  Serious: Yes (Hospitalization)
  Sender: FDA-Public Use
  Company Number: DE-ROCHE-2161383

PATIENT
  Age: 63 Year
  Sex: Female

DRUGS (7)
  1. PANTOPRAZOL [Concomitant]
     Active Substance: PANTOPRAZOLE SODIUM
  2. PRAMIPEXOL [Concomitant]
     Active Substance: PRAMIPEXOLE
  3. AMLODIPIN [Concomitant]
     Active Substance: AMLODIPINE BESYLATE
  4. RESTEX [Concomitant]
     Active Substance: BENSERAZIDE\LEVODOPA
  5. PREDNISOLON [Concomitant]
     Active Substance: PREDNISOLONE
  6. DEKRISTOL [Concomitant]
     Active Substance: CHOLECALCIFEROL
  7. TOCILIZUMAB. [Suspect]
     Active Substance: TOCILIZUMAB
     Indication: RHEUMATOID ARTHRITIS
     Route: 065

REACTIONS (2)
  - Hyperplasia [Recovered/Resolved]
  - Cholecystitis chronic [Recovered/Resolved]

NARRATIVE: CASE EVENT DATE: 20180226
